FAERS Safety Report 5206785-9 (Version None)
Quarter: 2006Q4

REPORT INFORMATION
  Report Type: 
  Country: None (occurrence: None)
  Receive Date: 20061027
  Receipt Date: 20060717
  Transmission Date: 20070319
  Serious: No
  Sender: FDA-Public Use
  Company Number: 012282

PATIENT
  Age: 52 Year
  Sex: Female

DRUGS (9)
  1. PRIALT [Suspect]
     Indication: PAIN
     Dosage: 0.13 UG, ONCE/HOUR, INTRATHECAL; SEE IMAGE
     Route: 037
     Dates: start: 20051001
  2. LOPRESSOR [Concomitant]
  3. NEXIUM [Concomitant]
  4. GLYCOPYRROLATE [Concomitant]
  5. METOCLOPRAMIDE [Concomitant]
  6. SYNTHROID [Concomitant]
  7. ZELNORM [Concomitant]
  8. DILAUDID [Concomitant]
  9. EVISTA [Concomitant]

REACTIONS (4)
  - ORAL DYSAESTHESIA [None]
  - PARAESTHESIA ORAL [None]
  - TONGUE DISORDER [None]
  - URINARY TRACT INFECTION [None]
